FAERS Safety Report 15092960 (Version 1)
Quarter: 2018Q2

REPORT INFORMATION
  Report Type: Spontaneous
  Country: IT (occurrence: IT)
  Receive Date: 20180629
  Receipt Date: 20180629
  Transmission Date: 20180711
  Serious: Yes (Other)
  Sender: FDA-Public Use
  Company Number: IT-TEVA-2018-IT-916641

PATIENT
  Age: 66 Year
  Sex: Female

DRUGS (1)
  1. RIVASTIGMINE. [Suspect]
     Active Substance: RIVASTIGMINE
     Route: 065

REACTIONS (2)
  - Vertigo [Unknown]
  - Headache [Unknown]

NARRATIVE: CASE EVENT DATE: 20180118
